FAERS Safety Report 12109492 (Version 2)
Quarter: 2016Q2

REPORT INFORMATION
  Report Type: Spontaneous
  Country: US (occurrence: US)
  Receive Date: 20160224
  Receipt Date: 20160408
  Transmission Date: 20160815
  Serious: No
  Sender: FDA-Public Use
  Company Number: US-JUBILANT PHARMA LTD-2015US000007

PATIENT
  Sex: Male

DRUGS (1)
  1. HICON [Suspect]
     Active Substance: SODIUM IODIDE I-131
     Indication: HYPERTHYROIDISM
     Dosage: 12-14 MCI
     Route: 065

REACTIONS (1)
  - Hyperthyroidism [Unknown]
